FAERS Safety Report 6935550-7 (Version None)
Quarter: 2010Q3

REPORT INFORMATION
  Report Type: 
  Country: None (occurrence: None)
  Receive Date: 20100823
  Receipt Date: 20100816
  Transmission Date: 20110219
  Serious: No
  Sender: FDA-Public Use
  Company Number: 2008BI010340

PATIENT
  Age: 53 Year
  Sex: Male

DRUGS (1)
  1. TYSABRI [Suspect]
     Indication: MULTIPLE SCLEROSIS
     Route: 042
     Dates: start: 20080321

REACTIONS (1)
  - DEMENTIA ALZHEIMER'S TYPE [None]
